FAERS Safety Report 7123564-6 (Version None)
Quarter: 2010Q4

REPORT INFORMATION
  Report Type: 
  Country: None (occurrence: None)
  Receive Date: 20101125
  Receipt Date: 20101111
  Transmission Date: 20110411
  Serious: Yes (Hospitalization)
  Sender: FDA-Public Use
  Company Number: JP-RANBAXY-2010RR-39443

PATIENT
  Age: 54 Year
  Sex: Male

DRUGS (1)
  1. MINOCYCLINE [Suspect]
     Indication: PRURITUS
     Dosage: 200 MG, UNK
     Dates: start: 20070825

REACTIONS (1)
  - GASTROENTERITIS EOSINOPHILIC [None]
